FAERS Safety Report 8108990 (Version 2)
Quarter: 2012Q4

REPORT INFORMATION
  Report Type: 
  Country: US (occurrence: US)
  Receive Date: 20110826
  Receipt Date: 20121212
  Transmission Date: 20130627
  Serious: Yes (Hospitalization)
  Sender: FDA-Public Use
  Company Number: US-GLAXOSMITHKLINE-A0922119A

PATIENT
  Age: 49 Year
  Sex: Male
  Weight: 127.3 kg

DRUGS (2)
  1. AVANDIA [Suspect]
     Indication: DIABETES MELLITUS
     Dosage: 4MG Twice per day
     Route: 048
     Dates: end: 2007
  2. AVANDAMET [Suspect]
     Indication: DIABETES MELLITUS
     Route: 048

REACTIONS (4)
  - Cerebrovascular accident [Not Recovered/Not Resolved]
  - Hepatic failure [Unknown]
  - Renal failure [Unknown]
  - Deafness [Unknown]
